FAERS Safety Report 8084682-1 (Version None)
Quarter: 2012Q1

REPORT INFORMATION
  Report Type: 
  Country: None (occurrence: None)
  Receive Date: 20120128
  Receipt Date: 20110311
  Transmission Date: 20120608
  Serious: No
  Sender: FDA-Public Use
  Company Number: US-ABBOTT-11P-163-0710965-00

PATIENT
  Age: 37 Year
  Sex: Male

DRUGS (2)
  1. PENTASA [Concomitant]
     Indication: CROHN'S DISEASE
  2. HUMIRA [Suspect]
     Indication: CROHN'S DISEASE
     Dates: start: 20100401

REACTIONS (3)
  - PYREXIA [None]
  - NASOPHARYNGITIS [None]
  - NASAL CONGESTION [None]
